FAERS Safety Report 5037708-3 (Version None)
Quarter: 2006Q2

REPORT INFORMATION
  Report Type: 
  Country: None (occurrence: None)
  Receive Date: 20060628
  Receipt Date: 20060615
  Transmission Date: 20061013
  Serious: Yes (Hospitalization)
  Sender: FDA-Public Use
  Company Number: US-BRISTOL-MYERS SQUIBB COMPANY-13425541

PATIENT
  Sex: Male

DRUGS (2)
  1. REYATAZ [Suspect]
     Dosage: CHANGED ON 03-MAR-2006 TO 600 MG
     Dates: start: 20040501
  2. NORVIR [Suspect]
     Dates: start: 20060303

REACTIONS (2)
  - ATRIAL FIBRILLATION [None]
  - MYOCARDIAL INFARCTION [None]
